FAERS Safety Report 7557493-0 (Version None)
Quarter: 2011Q2

REPORT INFORMATION
  Report Type: 
  Country: None (occurrence: None)
  Receive Date: 20110620
  Receipt Date: 20110608
  Transmission Date: 20111010
  Serious: Yes (Hospitalization)
  Sender: FDA-Public Use
  Company Number: FR-TEVA-286820ISR

PATIENT
  Sex: Male
  Weight: 64.2 kg

DRUGS (7)
  1. LENALIDOMIDE [Suspect]
     Indication: MULTIPLE MYELOMA
     Dosage: 10 MILLIGRAM;
     Route: 048
     Dates: start: 20100106
  2. LENALIDOMIDE [Suspect]
     Dosage: 10 MILLIGRAM;
     Route: 048
     Dates: start: 20110429, end: 20110524
  3. URAPIDIL [Concomitant]
     Indication: HYPERTENSION
     Dosage: 240 MILLIGRAM;
     Route: 048
     Dates: start: 20091219
  4. ACETYLSALICYLATE LYSINE [Concomitant]
     Indication: THROMBOSIS PROPHYLAXIS
     Dosage: 160 MILLIGRAM;
     Route: 048
     Dates: start: 20100106
  5. DEXAMETHASONE [Suspect]
     Dates: start: 20110529, end: 20110530
  6. DEXAMETHASONE [Suspect]
     Indication: MULTIPLE MYELOMA
     Route: 048
     Dates: start: 20100106
  7. AMIODARONE HYDROCHLORIDE [Concomitant]
     Indication: ATRIAL FIBRILLATION
     Dosage: 1 TABLET;
     Route: 048
     Dates: start: 20091219

REACTIONS (1)
  - SYNCOPE [None]
